FAERS Safety Report 25063719 (Version 1)
Quarter: 2025Q1

REPORT INFORMATION
  Report Type: Report from Study
  Country: DE (occurrence: DE)
  Receive Date: 20250311
  Receipt Date: 20250311
  Transmission Date: 20250408
  Serious: Yes (Other)
  Sender: ABBVIE
  Company Number: DE-ABBVIE-6169387

PATIENT
  Age: 64 Year
  Sex: Male

DRUGS (3)
  1. CARBIDOPA\LEVODOPA [Suspect]
     Active Substance: CARBIDOPA\LEVODOPA
     Indication: Parkinson^s disease
     Route: 050
     Dates: start: 20180709
  2. CARBIDOPA\LEVODOPA [Suspect]
     Active Substance: CARBIDOPA\LEVODOPA
  3. ENTACAPONE [Suspect]
     Active Substance: ENTACAPONE
     Indication: Product used for unknown indication
     Route: 065

REACTIONS (15)
  - Axonal and demyelinating polyneuropathy [Unknown]
  - Reduced facial expression [Unknown]
  - Dysarthria [Unknown]
  - Propulsive gait [Unknown]
  - Impulse-control disorder [Unknown]
  - Bladder dysfunction [Unknown]
  - Vitamin D deficiency [Unknown]
  - Neuralgia [Unknown]
  - Inguinal hernia [Unknown]
  - Umbilical hernia [Unknown]
  - Hypokinesia [Unknown]
  - Hallucination, visual [Unknown]
  - Feeling abnormal [Unknown]
  - Freezing phenomenon [Unknown]
  - Drug intolerance [Unknown]

NARRATIVE: CASE EVENT DATE: 20191024
